FAERS Safety Report 6707201-8 (Version None)
Quarter: 2010Q2

REPORT INFORMATION
  Report Type: 
  Country: None (occurrence: None)
  Receive Date: 20100503
  Receipt Date: 20090806
  Transmission Date: 20101027
  Serious: No
  Sender: FDA-Public Use
  Company Number: US-ASTRAZENECA-2009SE05503

PATIENT
  Age: 68 Year
  Sex: Female
  Weight: 70.3 kg

DRUGS (3)
  1. NEXIUM [Suspect]
     Route: 048
  2. SYNTHROID [Concomitant]
  3. FOSAMAX [Concomitant]

REACTIONS (2)
  - COUGH [None]
  - THROAT LESION [None]
